FAERS Safety Report 4587458-2 (Version None)
Quarter: 2005Q1

REPORT INFORMATION
  Report Type: 
  Country: None (occurrence: None)
  Receive Date: 20050215
  Receipt Date: 20050202
  Transmission Date: 20050727
  Serious: Yes (Death)
  Sender: FDA-Public Use
  Company Number: 2005009536

PATIENT
  Age: 56 Year
  Sex: Female
  Weight: 37.2 kg

DRUGS (2)
  1. IRINOTECAN HCL [Suspect]
     Indication: GASTRIC CANCER
     Dosage: 60 MG (UNKNOWN), INTRAVENOUS
     Route: 042
     Dates: start: 20041224, end: 20041224
  2. PACLITAXEL [Concomitant]

REACTIONS (5)
  - BACK PAIN [None]
  - BLOOD PRESSURE DECREASED [None]
  - DIARRHOEA [None]
  - RENAL FAILURE ACUTE [None]
  - VOMITING [None]
